FAERS Safety Report 7656536-3 (Version None)
Quarter: 2011Q3

REPORT INFORMATION
  Report Type: 
  Country: None (occurrence: None)
  Receive Date: 20110804
  Receipt Date: 20101119
  Transmission Date: 20111222
  Serious: No
  Sender: FDA-Public Use
  Company Number: US-BAUSCH-2010BL006630

PATIENT
  Age: 11 Year
  Sex: Female

DRUGS (2)
  1. FLONASE [Concomitant]
     Indication: SEASONAL ALLERGY
     Route: 045
  2. OPCON-A [Suspect]
     Route: 047
     Dates: start: 20101119, end: 20101119

REACTIONS (3)
  - INCORRECT DOSE ADMINISTERED [None]
  - WRONG DRUG ADMINISTERED [None]
  - MYDRIASIS [None]
